FAERS Safety Report 15956478 (Version 1)
Quarter: 2019Q1

REPORT INFORMATION
  Report Type: Spontaneous
  Country: US (occurrence: US)
  Receive Date: 20190213
  Receipt Date: 20190213
  Transmission Date: 20190417
  Serious: No
  Sender: FDA-Public Use
  Company Number: PHEH2019US005166

PATIENT
  Sex: Female

DRUGS (1)
  1. VORICONAZOLE. [Suspect]
     Active Substance: VORICONAZOLE
     Indication: ANTIFUNGAL TREATMENT
     Dosage: UNK
     Route: 065

REACTIONS (8)
  - Drug ineffective [Unknown]
  - Toxicity to various agents [Unknown]
  - Blood bilirubin increased [Unknown]
  - Feeling hot [Unknown]
  - Chromaturia [Unknown]
  - Inflammation [Unknown]
  - Liver function test increased [Unknown]
  - Urine odour abnormal [Unknown]
